FAERS Safety Report 25190997 (Version 2)
Quarter: 2025Q2

REPORT INFORMATION
  Report Type: Report from Study
  Country: GB (occurrence: GB)
  Receive Date: 20250411
  Receipt Date: 20250507
  Transmission Date: 20250716
  Serious: Yes (Hospitalization)
  Sender: TAKEDA
  Company Number: GB-TAKEDA-2025TUS020189

PATIENT
  Sex: Female

DRUGS (2)
  1. VEDOLIZUMAB [Suspect]
     Active Substance: VEDOLIZUMAB
     Indication: Colitis ulcerative
  2. VEDOLIZUMAB [Suspect]
     Active Substance: VEDOLIZUMAB
     Indication: Crohn^s disease

REACTIONS (9)
  - Liver function test abnormal [Unknown]
  - Tremor [Unknown]
  - Body temperature increased [Unknown]
  - Chromaturia [Unknown]
  - Feeling cold [Unknown]
  - Malaise [Unknown]
  - Decreased appetite [Unknown]
  - Nasopharyngitis [Unknown]
  - Arthralgia [Unknown]
